FAERS Safety Report 4701002-8 (Version None)
Quarter: 2005Q2

REPORT INFORMATION
  Report Type: 
  Country: None (occurrence: None)
  Receive Date: 20050624
  Receipt Date: 20050613
  Transmission Date: 20051028
  Serious: Yes (Other)
  Sender: FDA-Public Use
  Company Number: 2005-00967

PATIENT
  Age: 57 Year
  Sex: Female
  Weight: 79.4 kg

DRUGS (5)
  1. VELCADE [Suspect]
     Indication: MULTIPLE MYELOMA
     Dosage: 1.50 MG, 1/WEEK, INTRAVENOUS
     Route: 042
     Dates: start: 20040901, end: 20050301
  2. BACTRIM DS [Concomitant]
  3. AREDIA [Concomitant]
  4. ACYCLOVIR [Concomitant]
  5. NEURONTIN [Concomitant]

REACTIONS (4)
  - DEAFNESS [None]
  - EUSTACHIAN TUBE DISORDER [None]
  - OTITIS MEDIA CHRONIC [None]
  - UPPER RESPIRATORY TRACT INFECTION [None]
